FAERS Safety Report 20986023 (Version 1)
Quarter: 2022Q2

REPORT INFORMATION
  Report Type: Report from Study
  Country: US (occurrence: US)
  Receive Date: 20220621
  Receipt Date: 20220621
  Transmission Date: 20220721
  Serious: Yes (Other)
  Sender: FDA-Public Use
  Company Number: US-CELGENE-USA-20211202789

PATIENT
  Age: 66 Year
  Sex: Male
  Weight: 100.61 kg

DRUGS (24)
  1. LISOCABTAGENE MARALEUCEL [Suspect]
     Active Substance: LISOCABTAGENE MARALEUCEL
     Indication: Chronic lymphocytic leukaemia
     Dosage: FREQUENCY TEXT: SINGLE?5 X10^7 CD8+ T CELLS; 5 X10^7 CD4+ T CELLS
     Route: 042
     Dates: start: 20211203, end: 20211203
  2. CYCLOPHOSPHAMIDE [Concomitant]
     Active Substance: CYCLOPHOSPHAMIDE
     Indication: Lymphodepletion
     Dosage: ON DAYS 5, 4, 3
     Route: 042
     Dates: start: 20211128
  3. FLUDARABINE [Concomitant]
     Active Substance: FLUDARABINE PHOSPHATE
     Indication: Lymphodepletion
     Route: 042
  4. KETOCONAZOLE [Concomitant]
     Active Substance: KETOCONAZOLE
     Indication: Product used for unknown indication
     Dosage: FREQUENCY TEXT: PRN
     Route: 061
  5. KETOCONAZOLE [Concomitant]
     Active Substance: KETOCONAZOLE
     Dosage: FREQUENCY TEXT: PRN
     Route: 061
  6. LISINOPRIL [Concomitant]
     Active Substance: LISINOPRIL
     Indication: Product used for unknown indication
     Dosage: 5 MILLIGRAM
     Route: 048
     Dates: end: 20211206
  7. SIMVASTATIN [Concomitant]
     Active Substance: SIMVASTATIN
     Indication: Product used for unknown indication
     Dosage: 20 MILLIGRAM
     Route: 048
  8. ACETAMINOPHEN [Concomitant]
     Active Substance: ACETAMINOPHEN
     Indication: Pain
     Dosage: FREQUENCY TEXT: PRN
     Route: 048
  9. ACETAMINOPHEN [Concomitant]
     Active Substance: ACETAMINOPHEN
     Indication: Pyrexia
     Dosage: FREQUENCY TEXT: AS NEEDED?2600 MILLIGRAM
     Route: 048
     Dates: start: 20211208, end: 20211210
  10. ACETAMINOPHEN [Concomitant]
     Active Substance: ACETAMINOPHEN
     Dosage: FREQUENCY TEXT: NOT PROVIDED
     Route: 048
     Dates: start: 20211205
  11. ACETAMINOPHEN [Concomitant]
     Active Substance: ACETAMINOPHEN
     Dosage: FREQUENCY TEXT: NOT PROVIDED
     Route: 042
     Dates: start: 20211207
  12. ALLOPURINOL [Concomitant]
     Active Substance: ALLOPURINOL
     Indication: Prophylaxis
     Dosage: 300 MILLIGRAM
     Route: 048
     Dates: start: 20211128
  13. ACYCLOVIR [Concomitant]
     Active Substance: ACYCLOVIR
     Indication: Antiviral prophylaxis
     Dosage: 800 MILLIGRAM
     Route: 048
     Dates: start: 20211128
  14. RAMELTEON [Concomitant]
     Active Substance: RAMELTEON
     Indication: Insomnia
     Dosage: FREQUENCY TEXT: PRN?8 MILLIGRAM
     Route: 048
     Dates: start: 20211129, end: 20211210
  15. GUAIFENESIN [Concomitant]
     Active Substance: GUAIFENESIN
     Indication: Cough
     Dosage: FREQUENCY TEXT: AS NEEDED?5-10 ML
     Route: 048
     Dates: start: 20211130
  16. GUAIFENESIN [Concomitant]
     Active Substance: GUAIFENESIN
     Dosage: FREQUENCY TEXT: PRN?5-10 ML
     Route: 048
     Dates: start: 20211209
  17. GUAIFENESIN [Concomitant]
     Active Substance: GUAIFENESIN
     Dosage: 60 MILLILITER
     Route: 048
     Dates: start: 20211214
  18. GUAIFENESIN [Concomitant]
     Active Substance: GUAIFENESIN
     Dosage: FREQUENCY TEXT: PRN?40 MILLILITER
     Route: 048
     Dates: start: 20211217
  19. LORAZEPAM [Concomitant]
     Active Substance: LORAZEPAM
     Indication: Anxiety
     Dosage: FREQUENCY TEXT: PRN?0.5-1MG
     Route: 048
     Dates: start: 20211201
  20. LORAZEPAM [Concomitant]
     Active Substance: LORAZEPAM
     Indication: Nausea
  21. LORAZEPAM [Concomitant]
     Active Substance: LORAZEPAM
     Indication: Vomiting
  22. ESCITALOPRAM OXALATE [Concomitant]
     Active Substance: ESCITALOPRAM OXALATE
     Indication: Product used for unknown indication
     Dosage: 20 MILLIGRAM
     Route: 048
     Dates: start: 20211128
  23. IBUPROFEN [Concomitant]
     Active Substance: IBUPROFEN
     Indication: Pain
     Dosage: FREQUENCY TEXT: AS NEEDED
     Route: 065
  24. VITAMIN D3 [Concomitant]
     Active Substance: CHOLECALCIFEROL
     Indication: Product used for unknown indication
     Dosage: 25 MICROGRAM
     Route: 048
     Dates: start: 20211128

REACTIONS (6)
  - Cytokine release syndrome [Recovered/Resolved]
  - Neurotoxicity [Recovered/Resolved]
  - Haemophagocytic lymphohistiocytosis [Recovered/Resolved]
  - Anaemia [Recovered/Resolved]
  - Pneumonia viral [Recovered/Resolved]
  - Thrombocytopenia [Recovered/Resolved]

NARRATIVE: CASE EVENT DATE: 20211205
